FAERS Safety Report 16438702 (Version 1)
Quarter: 2019Q2

REPORT INFORMATION
  Report Type: Spontaneous
  Country: GB (occurrence: GB)
  Receive Date: 20190617
  Receipt Date: 20190617
  Transmission Date: 20190711
  Serious: Yes (Other)
  Sender: FDA-Public Use
  Company Number: GB-DEXPHARM-20190427

PATIENT
  Age: 73 Year
  Sex: Male
  Weight: 85 kg

DRUGS (10)
  1. OMEPRAZOLE. [Suspect]
     Active Substance: OMEPRAZOLE
     Indication: GASTROINTESTINAL DISORDER PROPHYLAXIS
     Dosage: 30 MINUTES BEFORE FOOD.
     Dates: start: 20180620
  2. PRO D3 [Concomitant]
     Dates: start: 20190409
  3. ATORVASTATIN [Concomitant]
     Active Substance: ATORVASTATIN
     Dates: start: 20181122
  4. PREDNISOLONE. [Concomitant]
     Active Substance: PREDNISOLONE
     Indication: POLYMYALGIA RHEUMATICA
     Dates: start: 20181122
  5. CANDESARTAN. [Concomitant]
     Active Substance: CANDESARTAN
     Dosage: 30 MINUTES BEFORE FOOD.
     Dates: start: 20181122, end: 20190408
  6. RANITIDINE. [Concomitant]
     Active Substance: RANITIDINE
     Dates: start: 20190515
  7. AMLODIPINE [Concomitant]
     Active Substance: AMLODIPINE BESYLATE
     Dates: start: 20181122
  8. ADCAL (CALCIUM CARBONATE) [Concomitant]
     Active Substance: CALCIUM CARBONATE
     Dates: start: 20181122, end: 20190409
  9. ALENDRONIC ACID [Concomitant]
     Active Substance: ALENDRONIC ACID
     Dates: start: 20190322
  10. LORATADINE. [Concomitant]
     Active Substance: LORATADINE
     Dates: start: 20181122

REACTIONS (1)
  - Acute kidney injury [Recovering/Resolving]

NARRATIVE: CASE EVENT DATE: 20190515
